FAERS Safety Report 5909119-7 (Version None)
Quarter: 2008Q4

REPORT INFORMATION
  Report Type: 
  Country: None (occurrence: None)
  Receive Date: 20081006
  Receipt Date: 20080903
  Transmission Date: 20090506
  Serious: No
  Sender: FDA-Public Use
  Company Number: US-BAYER-200833418NA

PATIENT
  Age: 43 Year
  Sex: Female

DRUGS (3)
  1. ULTRAVIST 370 [Suspect]
     Indication: COMPUTERISED TOMOGRAM ABDOMEN
     Dosage: TOTAL DAILY DOSE: 120  ML  UNIT DOSE: 500 ML
     Route: 042
     Dates: start: 20080903, end: 20080903
  2. YASMIN [Concomitant]
  3. CONTRAST MEDIA [Concomitant]
     Indication: COMPUTERISED TOMOGRAM ABDOMEN
     Route: 048
     Dates: start: 20080903, end: 20080903

REACTIONS (3)
  - ERYTHEMA [None]
  - THROAT IRRITATION [None]
  - URTICARIA [None]
